FAERS Safety Report 19363776 (Version 2)
Quarter: 2021Q2

REPORT INFORMATION
  Report Type: Spontaneous
  Country: US (occurrence: US)
  Receive Date: 20210602
  Receipt Date: 20210612
  Transmission Date: 20210717
  Serious: No
  Sender: FDA-Public Use
  Company Number: US-UNITED THERAPEUTICS-UNT-2021-010058

PATIENT
  Age: 66 Year
  Sex: Female
  Weight: 70.3 kg

DRUGS (3)
  1. REMODULIN [Suspect]
     Active Substance: TREPROSTINIL
     Indication: PULMONARY ARTERIAL HYPERTENSION
     Dosage: UNK, CONTINUING
     Route: 058
     Dates: start: 20180329
  2. SILDENAFIL. [Concomitant]
     Active Substance: SILDENAFIL
     Indication: PRODUCT USED FOR UNKNOWN INDICATION
     Dosage: UNK
     Route: 065
  3. REMODULIN [Suspect]
     Active Substance: TREPROSTINIL
     Dosage: 0.0731 ?G/KG, CONTINUING
     Route: 058

REACTIONS (6)
  - Infusion site pruritus [Unknown]
  - Fatigue [Unknown]
  - Product administration interrupted [Unknown]
  - Feeling abnormal [Unknown]
  - Unintentional medical device removal [Unknown]
  - Asthenia [Unknown]

NARRATIVE: CASE EVENT DATE: 20210603
